FAERS Safety Report 7970240-3 (Version None)
Quarter: 2011Q4

REPORT INFORMATION
  Report Type: 
  Country: None (occurrence: None)
  Receive Date: 20111212
  Receipt Date: 20111130
  Transmission Date: 20120403
  Serious: Yes (Disabling)
  Sender: FDA-Public Use
  Company Number: US-MYLANLABS-2011S1024853

PATIENT
  Sex: Female
  Weight: 71.22 kg

DRUGS (14)
  1. KADIAN [Suspect]
     Indication: PAIN
  2. VITAMIN B-12 [Concomitant]
     Indication: OSTEOPOROSIS
  3. RECLAST [Concomitant]
  4. LYRICA [Suspect]
  5. CALCIUM [Concomitant]
     Indication: OSTEOPOROSIS
  6. LYRICA [Suspect]
  7. HYDROCHLOROTHIAZIDE [Concomitant]
     Indication: HYPERTENSION
  8. LYRICA [Suspect]
     Indication: FIBROMYALGIA
  9. VITAMIN D [Concomitant]
     Indication: OSTEOPOROSIS
  10. LYRICA [Suspect]
     Indication: INTERVERTEBRAL DISC DEGENERATION
  11. LEVOTHYROXINE SODIUM [Suspect]
     Indication: THYROID DISORDER
  12. VITAMIN E [Concomitant]
     Indication: OSTEOPOROSIS
  13. ZOLOFT [Concomitant]
     Indication: SLEEP DISORDER
  14. LIPITOR [Concomitant]
     Indication: BLOOD CHOLESTEROL INCREASED

REACTIONS (4)
  - VISION BLURRED [None]
  - NIGHT BLINDNESS [None]
  - DIZZINESS [None]
  - VISUAL ACUITY REDUCED [None]
